FAERS Safety Report 4819838-1 (Version None)
Quarter: 2005Q4

REPORT INFORMATION
  Report Type: 
  Country: None (occurrence: None)
  Receive Date: 20051103
  Receipt Date: 20051019
  Transmission Date: 20060501
  Serious: Yes (Other)
  Sender: FDA-Public Use
  Company Number: GBWYE070219OCT05

PATIENT
  Age: 39 Year
  Sex: Female

DRUGS (2)
  1. ENBREL [Suspect]
     Indication: DRUG USE FOR UNKNOWN INDICATION
     Dosage: UNKNOWN
     Route: 065
     Dates: start: 20050101, end: 20050401
  2. ENBREL [Suspect]
     Dosage: UNKNOWN
     Dates: start: 20050801

REACTIONS (2)
  - AMENORRHOEA [None]
  - INFECTION [None]
